FAERS Safety Report 4724565-5 (Version None)
Quarter: 2005Q3

REPORT INFORMATION
  Report Type: 
  Country: None (occurrence: None)
  Receive Date: 20050719
  Receipt Date: 20050719
  Transmission Date: 20060218
  Serious: Yes (Hospitalization)
  Sender: FDA-Public Use
  Company Number: None

PATIENT
  Sex: Female
  Weight: 67.1324 kg

DRUGS (9)
  1. VIDEX [Suspect]
     Indication: HIV INFECTION
     Dosage: 1 PO DAILY
     Route: 048
     Dates: start: 20050127, end: 20050707
  2. DEPAKOTE ER [Suspect]
     Indication: MIGRAINE
     Dosage: 3 PO Q HS
     Route: 048
     Dates: start: 20020601, end: 20050707
  3. FUZEON [Concomitant]
  4. KALETRA [Concomitant]
  5. COMBIVIR [Concomitant]
  6. EFFEXOR [Concomitant]
  7. NORTRIPTYLINE HCL [Concomitant]
  8. OXANDRIN [Concomitant]
  9. SEROQUEL [Concomitant]

REACTIONS (2)
  - ABDOMINAL PAIN [None]
  - BLOOD AMYLASE ABNORMAL [None]
